FAERS Safety Report 18217682 (Version 1)
Quarter: 2020Q3

REPORT INFORMATION
  Report Type: Spontaneous
  Country: US (occurrence: US)
  Receive Date: 20200831
  Receipt Date: 20200831
  Transmission Date: 20201103
  Serious: Yes (Hospitalization)
  Sender: FDA-Public Use
  Company Number: None

PATIENT
  Age: 69 Year
  Sex: Male
  Weight: 67.59 kg

DRUGS (1)
  1. CEMIPLIMAB?RWLC (CEMIPLIMAB?RWLC 50MG/ML INJ, VIL, 7ML [Suspect]
     Active Substance: CEMIPLIMAB-RWLC
     Indication: METASTATIC SQUAMOUS CELL CARCINOMA
     Dosage: ?          OTHER FREQUENCY:OTHER;?
     Route: 042
     Dates: start: 20191125, end: 20200312

REACTIONS (5)
  - Dyspnoea [None]
  - Cough [None]
  - Wheezing [None]
  - Pneumonitis [None]
  - Respiratory failure [None]

NARRATIVE: CASE EVENT DATE: 20200411
